FAERS Safety Report 18501041 (Version 1)
Quarter: 2020Q4

REPORT INFORMATION
  Report Type: Spontaneous
  Country: US (occurrence: US)
  Receive Date: 20201113
  Receipt Date: 20201113
  Transmission Date: 20210114
  Serious: Yes (Other)
  Sender: FDA-Public Use
  Company Number: US-009507513-2011USA002562

PATIENT
  Age: 661 Month
  Sex: Male
  Weight: 113.4 kg

DRUGS (5)
  1. AMLODIPINE [Concomitant]
     Active Substance: AMLODIPINE BESYLATE
     Indication: HYPERTENSION
     Dosage: 10 MILLIGRAM, QD
     Route: 048
  2. ROSUVASTATIN. [Suspect]
     Active Substance: ROSUVASTATIN
     Indication: BLOOD CHOLESTEROL INCREASED
     Dosage: 20 MILLIGRAM, QD
     Route: 048
     Dates: start: 20180116, end: 20180205
  3. ASPIRIN. [Concomitant]
     Active Substance: ASPIRIN
     Dosage: UNK
     Route: 048
  4. ASPIRIN. [Concomitant]
     Active Substance: ASPIRIN
     Dosage: 81 MILLIGRAM, QD
     Route: 048
     Dates: start: 201801
  5. PRINIVIL [Suspect]
     Active Substance: LISINOPRIL
     Indication: HYPERTENSION
     Dosage: 10 MILLIGRAM, QD
     Route: 048

REACTIONS (8)
  - Abdominal pain [Not Recovered/Not Resolved]
  - Chromaturia [Not Recovered/Not Resolved]
  - Blood cholesterol increased [Unknown]
  - Weight decreased [Unknown]
  - Nausea [Unknown]
  - Hypophagia [Not Recovered/Not Resolved]
  - Pancreatitis [Unknown]
  - Ileus [Unknown]

NARRATIVE: CASE EVENT DATE: 201801
